FAERS Safety Report 4865089-4 (Version None)
Quarter: 2005Q4

REPORT INFORMATION
  Report Type: 
  Country: None (occurrence: None)
  Receive Date: 20051220
  Receipt Date: 20051220
  Transmission Date: 20060501
  Serious: Yes (Hospitalization, Other)
  Sender: FDA-Public Use
  Company Number: None

PATIENT
  Sex: Male
  Weight: 90 kg

DRUGS (5)
  1. DAUNORUBICIN [Suspect]
     Indication: ACUTE LYMPHOCYTIC LEUKAEMIA
     Dosage: SEE IMAGE
     Route: 042
     Dates: start: 20051117, end: 20051119
  2. VINCRISTINE [Suspect]
     Dosage: SEE IMAGE
     Route: 042
     Dates: start: 20051117, end: 20051208
  3. PREDNISONE [Suspect]
     Dosage: SEE IMAGE
     Route: 048
     Dates: start: 20051117, end: 20051213
  4. PEG-ASPARIGINASE [Suspect]
     Dosage: SEE IMAGE
     Route: 042
     Dates: start: 20051201, end: 20051201
  5. PEG-ASPARIGINASE [Suspect]
     Dosage: SEE IMAGE
     Route: 042
     Dates: start: 20051117

REACTIONS (6)
  - ABDOMINAL PAIN [None]
  - HYPOTENSION [None]
  - HYPOXIA [None]
  - LIVER FUNCTION TEST ABNORMAL [None]
  - MENTAL STATUS CHANGES [None]
  - PANCREATITIS [None]
